FAERS Safety Report 9403457 (Version 1)
Quarter: 2013Q3

REPORT INFORMATION
  Report Type: Spontaneous
  Country: US (occurrence: US)
  Receive Date: 20130716
  Receipt Date: 20130716
  Transmission Date: 20140515
  Serious: Yes (Disabling, Other)
  Sender: FDA-Public Use
  Company Number: US-GILEAD-2013-0074823

PATIENT
  Age: 63 Year
  Sex: Male

DRUGS (12)
  1. STRIBILD [Suspect]
     Indication: HIV INFECTION
     Dosage: 1 DF, QD
     Route: 048
     Dates: start: 20121211, end: 20130208
  2. COMBIVIR [Suspect]
     Indication: HIV INFECTION
     Dosage: UNK
     Dates: end: 20121211
  3. COMBIVIR [Suspect]
     Dosage: UNK
     Dates: start: 201302
  4. VIRACEPT [Suspect]
     Indication: HIV INFECTION
     Dosage: UNK
     Dates: end: 20121211
  5. VIRACEPT [Suspect]
     Dosage: UNK
     Dates: start: 201302
  6. ALPRAZOLAM [Concomitant]
     Indication: SOMNOLENCE
     Dosage: 2.5 MG, UNK
     Route: 048
     Dates: start: 201001, end: 201303
  7. DRONABINOL [Concomitant]
     Indication: PRODUCT USED FOR UNKNOWN INDICATION
     Dosage: 5 MG, UNK
     Route: 048
  8. FLUTICASONE [Concomitant]
     Indication: PRODUCT USED FOR UNKNOWN INDICATION
     Dosage: 50 ?G, UNK
  9. LIPITOR [Concomitant]
     Indication: PRODUCT USED FOR UNKNOWN INDICATION
     Dosage: 10 MG, UNK
     Route: 048
  10. LISINOPRIL [Concomitant]
     Indication: PRODUCT USED FOR UNKNOWN INDICATION
     Dosage: 10 MG, UNK
     Route: 048
  11. VALACYCLOVIR HYDROCHLORIDE [Concomitant]
     Indication: PRODUCT USED FOR UNKNOWN INDICATION
     Dosage: 500 MG, UNK
     Route: 048
  12. VENTOLIN                           /00139501/ [Concomitant]
     Indication: PRODUCT USED FOR UNKNOWN INDICATION
     Dosage: 900 ?G, UNK

REACTIONS (2)
  - Sleep disorder [Not Recovered/Not Resolved]
  - Abnormal dreams [Not Recovered/Not Resolved]
